FAERS Safety Report 9319647 (Version 9)
Quarter: 2015Q3

REPORT INFORMATION
  Report Type: Spontaneous
  Country: US (occurrence: US)
  Receive Date: 20130530
  Receipt Date: 20150914
  Transmission Date: 20151125
  Serious: Yes (Death, Hospitalization, Other)
  Sender: FDA-Public Use
  Company Number: US-GLAXOSMITHKLINE-A1019332A

PATIENT
  Age: 54 Year
  Sex: Female

DRUGS (9)
  1. FLOLAN [Suspect]
     Active Substance: EPOPROSTENOL SODIUM
     Indication: PULMONARY ARTERIAL HYPERTENSION
     Dosage: 8 NG/KG/MIN CONTINUOUSLYDOSE: 10 NG/KG/MIN CONTINUOUSLYCONCENTRATION: 15000 NG/MLVIAL STRENGTH:[...]
     Route: 042
     Dates: start: 20110302
  2. FLOLAN [Suspect]
     Active Substance: EPOPROSTENOL SODIUM
     Dosage: 20 NG/KG/MIN (CONCENTRATION 30,000 NG/ML; PUMP RATE 66 ML/DAY; VIAL STRENGTH 1.5 MG/ML), CO
     Route: 042
  3. FLOLAN [Suspect]
     Active Substance: EPOPROSTENOL SODIUM
     Dosage: UNK
     Dates: start: 20110302
  4. FLOLAN [Suspect]
     Active Substance: EPOPROSTENOL SODIUM
     Dosage: 12 NG/KG/MIN CONTINUOUS; CONCENTRATION: 15,000 NG/ML; PUMP RATE: 79 ML/DAY; VIAL STRENGTH: 1.5 MG
     Route: 042
     Dates: start: 20110302
  5. FLOLAN [Suspect]
     Active Substance: EPOPROSTENOL SODIUM
     Dosage: UNK
     Dates: start: 20110302
  6. FLOLAN [Suspect]
     Active Substance: EPOPROSTENOL SODIUM
     Dosage: 20 NG/KG/MIN CONTINUOUS; CONCENTRATION: 30,000 NG/ML; PUMP RATE: 66 ML/DAY; VIAL STRENGTH: 1.5 MG
     Route: 042
     Dates: start: 20110325
  7. FLOLAN [Suspect]
     Active Substance: EPOPROSTENOL SODIUM
     Dosage: UNK
     Dates: start: 20110302
  8. FLOLAN [Suspect]
     Active Substance: EPOPROSTENOL SODIUM
     Dosage: UNK
     Dates: start: 20110302
  9. FLOLAN [Suspect]
     Active Substance: EPOPROSTENOL SODIUM
     Dosage: UNK, CO
     Route: 042
     Dates: start: 20110302

REACTIONS (18)
  - Bladder neoplasm [Unknown]
  - Catheter site inflammation [Unknown]
  - Feeling hot [Unknown]
  - Night sweats [Unknown]
  - Nasopharyngitis [Unknown]
  - Nasal congestion [Unknown]
  - Viral infection [Unknown]
  - Catheter site erythema [Unknown]
  - Catheter site pruritus [Unknown]
  - Medical device complication [Unknown]
  - Upper respiratory tract infection [Unknown]
  - Death [Fatal]
  - Catheter site haemorrhage [Unknown]
  - Musculoskeletal pain [Recovered/Resolved]
  - Abdominal pain [Unknown]
  - Drug administration error [Unknown]
  - Flushing [Recovered/Resolved]
  - Productive cough [Unknown]

NARRATIVE: CASE EVENT DATE: 20150907
